FAERS Safety Report 17524770 (Version 1)
Quarter: 2020Q1

REPORT INFORMATION
  Report Type: Spontaneous
  Country: GB (occurrence: GB)
  Receive Date: 20200311
  Receipt Date: 20200311
  Transmission Date: 20200409
  Serious: Yes (Other)
  Sender: FDA-Public Use
  Company Number: GB-TEVA-2020-GB-1197245

PATIENT
  Age: 45 Year
  Sex: Female

DRUGS (1)
  1. AMOXICILLIN. [Suspect]
     Active Substance: AMOXICILLIN
     Dosage: 750 MG
     Route: 048

REACTIONS (3)
  - Product dispensing error [Unknown]
  - Lower respiratory tract infection [Unknown]
  - Condition aggravated [Unknown]
